FAERS Safety Report 11938715 (Version 6)
Quarter: 2016Q1

REPORT INFORMATION
  Report Type: Report from Study
  Country: US (occurrence: US)
  Receive Date: 20160122
  Receipt Date: 20160224
  Transmission Date: 20160526
  Serious: Yes (Other)
  Sender: FDA-Public Use
  Company Number: US-AMGEN-USASL2016005442

PATIENT
  Age: 33 Year
  Sex: Female

DRUGS (5)
  1. ENBREL [Suspect]
     Active Substance: ETANERCEPT
     Dosage: 50 MG, 2 TIMES/WK
     Route: 058
     Dates: start: 201511
  2. KLONOPIN [Concomitant]
     Active Substance: CLONAZEPAM
     Dosage: UNK
  3. ENBREL [Suspect]
     Active Substance: ETANERCEPT
     Indication: PSORIATIC ARTHROPATHY
     Dosage: 50 MG, 2 TIMES/WK
     Route: 058
     Dates: start: 2012
  4. ENBREL [Suspect]
     Active Substance: ETANERCEPT
     Indication: PSORIASIS
     Dosage: UNK, DOSE REDUCES
     Route: 058
  5. FLEXERIL [Concomitant]
     Active Substance: CYCLOBENZAPRINE HYDROCHLORIDE
     Dosage: UNK

REACTIONS (25)
  - Crying [Unknown]
  - Joint crepitation [Unknown]
  - Respiratory tract infection [Unknown]
  - Malaise [Unknown]
  - Disturbance in attention [Unknown]
  - Cushing^s syndrome [Unknown]
  - Device issue [Unknown]
  - Psoriasis [Unknown]
  - Injection site haemorrhage [Unknown]
  - Vomiting [Unknown]
  - Anxiety [Unknown]
  - Asthenia [Unknown]
  - Rhinorrhoea [Unknown]
  - Injection site extravasation [Unknown]
  - Underdose [Unknown]
  - Epistaxis [Unknown]
  - Blood pressure abnormal [Unknown]
  - Sinusitis [Unknown]
  - Chondrolysis [Unknown]
  - Psoriatic arthropathy [Not Recovered/Not Resolved]
  - Ear infection [Unknown]
  - Nasopharyngitis [Unknown]
  - Injection site bruising [Unknown]
  - Fatigue [Unknown]
  - Depression [Unknown]

NARRATIVE: CASE EVENT DATE: 2015
